FAERS Safety Report 4379418-1 (Version None)
Quarter: 2004Q2

REPORT INFORMATION
  Report Type: 
  Country: None (occurrence: None)
  Receive Date: 20040614
  Receipt Date: 20040602
  Transmission Date: 20050107
  Serious: Yes (Other)
  Sender: FDA-Public Use
  Company Number: GB-JNJFOC-20040504622

PATIENT
  Age: 42 Year
  Sex: Male
  Weight: 84 kg

DRUGS (8)
  1. REMICADE [Suspect]
     Indication: RHEUMATOID ARTHRITIS
     Dosage: 3 MG/KG INTRAVENOUS
     Route: 042
     Dates: start: 20030224, end: 20030922
  2. METHOTREXATE [Concomitant]
  3. SULFASALAZINE [Concomitant]
  4. FOSAMAX [Concomitant]
  5. FOLIC ACID [Concomitant]
  6. HYDROXYCHLOROQUINE SULFATE [Concomitant]
  7. CELEBREX [Concomitant]
  8. AMITRIPTYLINE HCL [Concomitant]

REACTIONS (5)
  - BRONCHOSPASM [None]
  - BURNING SENSATION [None]
  - FEELING HOT [None]
  - INFUSION RELATED REACTION [None]
  - OBSTRUCTIVE AIRWAYS DISORDER [None]
